FAERS Safety Report 15297179 (Version 2)
Quarter: 2018Q4

REPORT INFORMATION
  Report Type: Spontaneous
  Country: TH (occurrence: TH)
  Receive Date: 20180820
  Receipt Date: 20181211
  Transmission Date: 20190204
  Serious: Yes (Death, Hospitalization)
  Sender: FDA-Public Use
  Company Number: TH-BAYER-2018-119616

PATIENT
  Age: 54 Year
  Sex: Male

DRUGS (4)
  1. LASIX [Concomitant]
     Active Substance: FUROSEMIDE
     Indication: ASCITES
     Dosage: 40 MG (? TABLET OD)
  2. PROPRANOLOL [Concomitant]
     Active Substance: PROPRANOLOL HYDROCHLORIDE
     Indication: ASCITES
     Dosage: 1 DF, BID
  3. ULTRAVIST [Suspect]
     Active Substance: IOPROMIDE
     Indication: COMPUTERISED TOMOGRAM ABDOMEN
     Dosage: UNK UNK, ONCE
     Dates: start: 20180621, end: 20180621
  4. ALDACTONE [POTASSIUM CANRENOATE] [Concomitant]
     Active Substance: CANRENOATE POTASSIUM
     Indication: ASCITES
     Dosage: 2 DF, QD

REACTIONS (8)
  - Chest discomfort [Fatal]
  - Wheezing [Recovered/Resolved]
  - Tumour rupture [Fatal]
  - Oxygen saturation decreased [Recovered/Resolved]
  - Acute kidney injury [Fatal]
  - Haematocrit decreased [None]
  - Dyspnoea [Fatal]
  - Blood pressure increased [Recovered/Resolved]
